FAERS Safety Report 5053338-1 (Version None)
Quarter: 2006Q3

REPORT INFORMATION
  Report Type: 
  Country: None (occurrence: None)
  Receive Date: 20060705
  Receipt Date: 20060627
  Transmission Date: 20061208
  Serious: Yes (Other)
  Sender: FDA-Public Use
  Company Number: HQ1095616FEB2000

PATIENT
  Age: 25 Month
  Sex: Male

DRUGS (3)
  1. BENEFIX [Suspect]
     Indication: FACTOR IX DEFICIENCY
     Dosage: SEE IMAGE
     Route: 042
     Dates: start: 19980509, end: 19981223
  2. BENEFIX [Suspect]
     Indication: FACTOR IX DEFICIENCY
     Dosage: SEE IMAGE
     Route: 042
     Dates: start: 19990107, end: 19990107
  3. BENEFIX [Suspect]
     Indication: FACTOR IX DEFICIENCY
     Dosage: SEE IMAGE
     Route: 042
     Dates: start: 19981201, end: 19990107

REACTIONS (2)
  - ANAPHYLACTOID REACTION [None]
  - DRUG SPECIFIC ANTIBODY PRESENT [None]
